FAERS Safety Report 6134527-1 (Version None)
Quarter: 2009Q1

REPORT INFORMATION
  Report Type: 
  Country: None (occurrence: None)
  Receive Date: 20090327
  Receipt Date: 20090323
  Transmission Date: 20090719
  Serious: Yes (Other)
  Sender: FDA-Public Use
  Company Number: US-BAYER-200913863NA

PATIENT
  Age: 53 Year
  Sex: Female

DRUGS (6)
  1. AVELOX [Suspect]
     Indication: DRUG USE FOR UNKNOWN INDICATION
     Dosage: TOTAL DAILY DOSE: 400 MG  UNIT DOSE: 400 MG
     Dates: start: 20090201
  2. AVELOX [Suspect]
     Dosage: #10 FREE TRIAL THERAPY
     Dates: start: 20080806
  3. VALIUM [Concomitant]
     Dosage: 1 EVERY SIX HOURS AS NEEDED
  4. VICODIN ES [Concomitant]
     Dosage: ONE EVERY SIX HOURS AS NEEDED
  5. PREVACID [Concomitant]
     Dosage: TOTAL DAILY DOSE: 30 MG
  6. WELLBUTRIN XL [Concomitant]
     Dosage: TOTAL DAILY DOSE: 300 MG

REACTIONS (1)
  - ANAPHYLACTIC REACTION [None]
